FAERS Safety Report 10994283 (Version 1)
Quarter: 2015Q2

REPORT INFORMATION
  Report Type: Spontaneous
  Country: AU (occurrence: None)
  Receive Date: 20150406
  Receipt Date: 20150406
  Transmission Date: 20150821
  Serious: Yes (Other)
  Sender: FDA-Public Use
  Company Number: None

PATIENT
  Age: 49 Year
  Sex: Male
  Weight: 69 kg

DRUGS (2)
  1. OLIVE LEAF [Concomitant]
  2. ROCTA 10 ISOTRETINOIN 10MG [Suspect]
     Active Substance: ISOTRETINOIN
     Indication: ACNE
     Dosage: ASPEN AUSTRALIA -- --
     Dates: start: 20150315, end: 20150402

REACTIONS (4)
  - Poor quality sleep [None]
  - Gastrooesophageal reflux disease [None]
  - Anxiety [None]
  - Thinking abnormal [None]

NARRATIVE: CASE EVENT DATE: 20150402
